FAERS Safety Report 9918176 (Version 2)
Quarter: 2014Q1

REPORT INFORMATION
  Report Type: Report from Study
  Country: HU (occurrence: HU)
  Receive Date: 20140223
  Receipt Date: 20140223
  Transmission Date: 20141002
  Serious: Yes (Death, Hospitalization)
  Sender: FDA-Public Use
  Company Number: HU-BRISTOL-MYERS SQUIBB COMPANY-19967959

PATIENT
  Age: 59 Year
  Sex: Male

DRUGS (5)
  1. BLINDED: IPILIMUMAB [Suspect]
     Indication: NON-SMALL CELL LUNG CANCER
     Dosage: 1 DF=180?08AUG13-08AUG13?22AUG13-22AUG13
     Dates: start: 20130808, end: 20130822
  2. CARBOPLATIN [Suspect]
     Indication: NON-SMALL CELL LUNG CANCER
  3. PACLITAXEL [Suspect]
     Indication: NON-SMALL CELL LUNG CANCER
  4. BLINDED: PLACEBO [Suspect]
     Indication: NON-SMALL CELL LUNG CANCER
  5. JURNISTA [Concomitant]
     Dates: start: 20131208, end: 20131209

REACTIONS (2)
  - Malignant neoplasm progression [Fatal]
  - Fatigue [Recovered/Resolved]
